FAERS Safety Report 8614156-8 (Version None)
Quarter: 2012Q3

REPORT INFORMATION
  Report Type: 
  Country: None (occurrence: None)
  Receive Date: 20120823
  Receipt Date: 20120810
  Transmission Date: 20120928
  Serious: No
  Sender: FDA-Public Use
  Company Number: US-BAYER-2012-050686

PATIENT
  Sex: Female

DRUGS (1)
  1. MIRENA [Suspect]
     Dosage: 20 ?G/D, CONT
     Route: 015
     Dates: start: 20110511, end: 20120419

REACTIONS (5)
  - ABDOMINAL PAIN LOWER [None]
  - METRORRHAGIA [None]
  - PAIN [None]
  - UTERINE PAIN [None]
  - MENORRHAGIA [None]
